FAERS Safety Report 10068837 (Version 3)
Quarter: 2014Q2

REPORT INFORMATION
  Report Type: Report from Study
  Country: US (occurrence: US)
  Receive Date: 20140409
  Receipt Date: 20140415
  Transmission Date: 20141212
  Serious: Yes (Hospitalization, Other)
  Sender: FDA-Public Use
  Company Number: PHHY2014US040398

PATIENT
  Age: 54 Year
  Sex: Male

DRUGS (15)
  1. 5-FLUOROURACIL [Suspect]
     Indication: COLON CANCER
     Dosage: 2400 MG/M2, 1 IN 2 WEEK
     Route: 042
     Dates: start: 20130314, end: 20130625
  2. 5-FLUOROURACIL [Suspect]
     Dosage: 400 MG/M2, 1 IN 2 WEEK
     Route: 040
     Dates: start: 20130314, end: 20130625
  3. 5-FLUOROURACIL [Suspect]
     Route: 042
     Dates: start: 20130918
  4. 5-FLUOROURACIL [Suspect]
     Route: 040
     Dates: start: 20130918
  5. OXALIPLATIN [Suspect]
     Indication: COLON CANCER
     Dosage: 85 MG/KG, EVERY 2 WEEK
     Route: 042
     Dates: start: 20130314, end: 20130625
  6. IRINOTECAN [Suspect]
     Indication: COLON CANCER
     Dosage: UNK UKN, UNK
  7. BEVACIZUMAB [Suspect]
     Indication: COLON CANCER
  8. CAPECITABINE [Suspect]
     Indication: COLON CANCER
  9. FOLINIC ACID [Suspect]
     Indication: COLON CANCER
     Dosage: 400 MG/KG, EVERY 2 WEEK
     Route: 042
     Dates: start: 20130314, end: 20130625
  10. FOLINIC ACID [Suspect]
     Dosage: 400 MG/KG, QW2
     Route: 042
     Dates: start: 20130918
  11. LEUCOVORIN [Suspect]
     Indication: COLON CANCER
  12. POTASSIUM CHLORIDE [Concomitant]
     Dosage: 20 MEQ, QD
     Dates: start: 20130707, end: 20130711
  13. MAGNESIUM SULFATE [Concomitant]
     Dosage: 2 G, UNK
     Dates: start: 20130609, end: 20130709
  14. DIPHENOXYLATE HCL AND ATROPINE SULFATE [Concomitant]
     Dosage: UNK UKN, UNK
     Dates: start: 20130708, end: 20130710
  15. LOMOTIL [Concomitant]
     Dosage: UNK UKN, UNK
     Dates: start: 20130711

REACTIONS (14)
  - Vomiting [Not Recovered/Not Resolved]
  - Diarrhoea [Not Recovered/Not Resolved]
  - Dehydration [Not Recovered/Not Resolved]
  - General physical health deterioration [Not Recovered/Not Resolved]
  - Sinus tachycardia [Unknown]
  - Pleural effusion [Unknown]
  - Acquired diaphragmatic eventration [Unknown]
  - Bundle branch block left [Unknown]
  - Central nervous system lesion [Unknown]
  - Malignant neoplasm progression [Unknown]
  - Blood albumin decreased [Recovered/Resolved]
  - Blood potassium decreased [Recovered/Resolved]
  - Blood creatinine increased [Recovered/Resolved]
  - Tachycardia [Unknown]
